FAERS Safety Report 9347117 (Version 1)
Quarter: 2013Q2

REPORT INFORMATION
  Report Type: Spontaneous
  Country: TR (occurrence: TR)
  Receive Date: 20130613
  Receipt Date: 20130613
  Transmission Date: 20140414
  Serious: Yes (Other)
  Sender: FDA-Public Use
  Company Number: TR-GLAXOSMITHKLINE-B0899152A

PATIENT
  Age: 33 Year
  Sex: Female

DRUGS (2)
  1. HEPSERA [Suspect]
     Indication: CHRONIC HEPATITIS B
     Dosage: 10MG PER DAY
     Route: 048
  2. ZEFFIX [Suspect]
     Indication: CHRONIC HEPATITIS B
     Dosage: 100MG PER DAY
     Route: 048

REACTIONS (3)
  - Viral load increased [Recovered/Resolved]
  - Genotype drug resistance test positive [Recovered/Resolved]
  - Genotype drug resistance test positive [Recovered/Resolved]
